FAERS Safety Report 6763243-8 (Version None)
Quarter: 2010Q2

REPORT INFORMATION
  Report Type: 
  Country: None (occurrence: None)
  Receive Date: 20100608
  Receipt Date: 20100608
  Transmission Date: 20101027
  Serious: Yes (Hospitalization)
  Sender: FDA-Public Use
  Company Number: None

PATIENT
  Age: 48 Year
  Sex: Male
  Weight: 85.5 kg

DRUGS (2)
  1. SUNITINIB MALATE [Suspect]
     Indication: ANAPLASTIC ASTROCYTOMA
     Dosage: 37.5MG DAILY PO
     Route: 048
     Dates: start: 20100505, end: 20100601
  2. SUNITINIB MALATE [Suspect]

REACTIONS (5)
  - FALL [None]
  - HEADACHE [None]
  - HYPONATRAEMIA [None]
  - MUSCULAR WEAKNESS [None]
  - THROMBOCYTOPENIA [None]
